FAERS Safety Report 9088073 (Version 1)
Quarter: 2013Q1

REPORT INFORMATION
  Report Type: Report from Study
  Country: US (occurrence: US)
  Receive Date: 20130130
  Receipt Date: 20130130
  Transmission Date: 20140127
  Serious: No
  Sender: FDA-Public Use
  Company Number: US-ABBOTT-12P-163-0953587-00

PATIENT
  Age: 23 Year
  Sex: Female

DRUGS (6)
  1. HUMIRA 40 MG/0.8 ML PEN [Suspect]
     Indication: CROHN^S DISEASE
     Dates: start: 20120411
  2. ENTOCORT [Concomitant]
     Indication: CROHN^S DISEASE
  3. ZOFRAN [Concomitant]
     Indication: NAUSEA
  4. DEXILANT [Concomitant]
     Indication: GASTROOESOPHAGEAL REFLUX DISEASE
  5. ORAL CONTRACEPTIVE NOS [Concomitant]
     Indication: PRODUCT USED FOR UNKNOWN INDICATION
  6. CITALOPRAM [Concomitant]
     Indication: DEPRESSION
     Route: 048

REACTIONS (6)
  - Onychomadesis [Not Recovered/Not Resolved]
  - Onychomadesis [Not Recovered/Not Resolved]
  - Crohn^s disease [Not Recovered/Not Resolved]
  - Drug ineffective [Not Recovered/Not Resolved]
  - Arthralgia [Not Recovered/Not Resolved]
  - Proctalgia [Not Recovered/Not Resolved]
